FAERS Safety Report 12498966 (Version 1)
Quarter: 2016Q2

REPORT INFORMATION
  Report Type: Report from Study
  Country: AU (occurrence: AU)
  Receive Date: 20160627
  Receipt Date: 20160627
  Transmission Date: 20160815
  Serious: Yes (Hospitalization, Other)
  Sender: FDA-Public Use
  Company Number: AU-ROCHE-1779159

PATIENT

DRUGS (4)
  1. RITUXIMAB [Suspect]
     Active Substance: RITUXIMAB
     Route: 042
  2. FLUDARABINE [Suspect]
     Active Substance: FLUDARABINE PHOSPHATE
     Indication: CHRONIC LYMPHOCYTIC LEUKAEMIA
     Route: 065
  3. RITUXIMAB [Suspect]
     Active Substance: RITUXIMAB
     Indication: CHRONIC LYMPHOCYTIC LEUKAEMIA
     Dosage: 375 MG/M2 ON THE FIRST DAY OF CYCLE 1, THEN 500 MG/M2 ON THE FIRST DAY OF EVERY SUBSEQUENT CYCLE
     Route: 042
  4. CYCLOPHOSPHAMIDE. [Suspect]
     Active Substance: CYCLOPHOSPHAMIDE
     Indication: CHRONIC LYMPHOCYTIC LEUKAEMIA
     Route: 065

REACTIONS (13)
  - Pyrexia [Unknown]
  - Herpes zoster disseminated [Unknown]
  - Fungal infection [Unknown]
  - Infection [Unknown]
  - Febrile neutropenia [Unknown]
  - Abdominal pain upper [Unknown]
  - Pneumocystis jirovecii pneumonia [Unknown]
  - Anaemia [Unknown]
  - Thrombocytopenia [Unknown]
  - Tumour lysis syndrome [Unknown]
  - Infusion related reaction [Unknown]
  - Transfusion-related circulatory overload [Unknown]
  - Neutropenia [Unknown]
